FAERS Safety Report 6702914-6 (Version None)
Quarter: 2010Q2

REPORT INFORMATION
  Report Type: 
  Country: None (occurrence: None)
  Receive Date: 20100429
  Receipt Date: 20100421
  Transmission Date: 20101027
  Serious: Yes (Other)
  Sender: FDA-Public Use
  Company Number: US-AMGEN-QUU407786

PATIENT
  Sex: Female

DRUGS (4)
  1. NPLATE [Suspect]
     Indication: IDIOPATHIC THROMBOCYTOPENIC PURPURA
     Dates: start: 20090423, end: 20090615
  2. CORTICOSTEROIDS [Concomitant]
     Dates: start: 20051118
  3. DANAZOL [Concomitant]
     Dates: start: 20060123
  4. CYCLOSPORINE [Concomitant]
     Dates: start: 20080820

REACTIONS (1)
  - TRANSIENT ISCHAEMIC ATTACK [None]
